FAERS Safety Report 8359315-7 (Version None)
Quarter: 2012Q2

REPORT INFORMATION
  Report Type: 
  Country: None (occurrence: None)
  Receive Date: 20120515
  Receipt Date: 20120511
  Transmission Date: 20120825
  Serious: No
  Sender: FDA-Public Use
  Company Number: CA-PFIZER INC-2012115716

PATIENT
  Sex: Male
  Weight: 88.4 kg

DRUGS (3)
  1. EMCYT [Suspect]
     Dosage: 840 MG (6 CAPSULE OF 140 MG), DAILY
     Route: 048
     Dates: start: 20120201, end: 20120401
  2. EMCYT [Suspect]
     Indication: PROSTATE CANCER
     Dosage: 1120 MG (8 CAPSULE OF 140 MG), DAILY
     Route: 048
     Dates: start: 20111215, end: 20120101
  3. EMCYT [Suspect]
     Dosage: 840 MG (6 CAPSULE OF 140 MG), DAILY
     Route: 048
     Dates: start: 20120101, end: 20120208

REACTIONS (6)
  - DEPRESSION [None]
  - CLAUSTROPHOBIA [None]
  - OEDEMA PERIPHERAL [None]
  - DIARRHOEA [None]
  - ANXIETY [None]
  - STRESS [None]
